FAERS Safety Report 5140058-8 (Version None)
Quarter: 2006Q4

REPORT INFORMATION
  Report Type: 
  Country: None (occurrence: None)
  Receive Date: 20061031
  Receipt Date: 20061019
  Transmission Date: 20070319
  Serious: Yes (Death)
  Sender: FDA-Public Use
  Company Number: 2006AP04962

PATIENT
  Age: 907 Month
  Sex: Male
  Weight: 64.1 kg

DRUGS (7)
  1. IRESSA [Suspect]
     Indication: ADENOSQUAMOUS CELL LUNG CANCER STAGE I
     Route: 048
     Dates: start: 20060907, end: 20061017
  2. CISPLATIN [Concomitant]
     Dosage: 4 COURSES GIVEN AS FIRST LINE TREATMENT
     Dates: start: 20050701, end: 20051001
  3. DOCETAXEL [Concomitant]
     Dosage: 4 COURSE GIVEN AS FIRST LINE TREATMENT
     Dates: start: 20050701, end: 20051001
  4. GEMCITABINE [Concomitant]
     Dosage: 3 COURSES GIVEN
     Dates: start: 20060401, end: 20060601
  5. VINORELBINE [Concomitant]
     Dosage: SECOND LINE TREATMENT
     Dates: start: 20060401, end: 20060601
  6. RADIOTHERAPY [Concomitant]
     Dosage: 50 GY TO MEDIASTINUM AND LEFT HILUS
     Dates: start: 20060201, end: 20060301
  7. ANTIHYPERTENSIVES [Concomitant]

REACTIONS (4)
  - DISSEMINATED INTRAVASCULAR COAGULATION [None]
  - INFECTION [None]
  - METASTASES TO LUNG [None]
  - PYREXIA [None]
